FAERS Safety Report 19668064 (Version 1)
Quarter: 2021Q3

REPORT INFORMATION
  Report Type: Other
  Country: US (occurrence: US)
  Receive Date: 20210806
  Receipt Date: 20210806
  Transmission Date: 20211014
  Serious: Yes (Other)
  Sender: FDA-Public Use
  Company Number: US-APOTEX-2021AP029503

PATIENT
  Age: 58 Year

DRUGS (8)
  1. ZANTAC [Suspect]
     Active Substance: RANITIDINE HYDROCHLORIDE
     Indication: SWELLING
  2. ZANTAC [Suspect]
     Active Substance: RANITIDINE HYDROCHLORIDE
     Indication: INFLAMMATION
  3. RANITIDINE TABLETS [Suspect]
     Active Substance: RANITIDINE HYDROCHLORIDE
     Dosage: DAILY
     Route: 065
     Dates: start: 201003, end: 201203
  4. ZANTAC [Suspect]
     Active Substance: RANITIDINE HYDROCHLORIDE
     Dosage: DAILY
     Route: 065
     Dates: start: 201003, end: 201203
  5. RANITIDINE TABLETS [Suspect]
     Active Substance: RANITIDINE HYDROCHLORIDE
     Indication: ABDOMINAL DISCOMFORT
  6. ZANTAC [Suspect]
     Active Substance: RANITIDINE HYDROCHLORIDE
     Indication: ABDOMINAL DISCOMFORT
  7. RANITIDINE TABLETS [Suspect]
     Active Substance: RANITIDINE HYDROCHLORIDE
     Indication: SWELLING
  8. RANITIDINE TABLETS [Suspect]
     Active Substance: RANITIDINE HYDROCHLORIDE
     Indication: INFLAMMATION

REACTIONS (1)
  - Prostate cancer [Not Recovered/Not Resolved]

NARRATIVE: CASE EVENT DATE: 20130101
